FAERS Safety Report 9721525 (Version 1)
Quarter: 2013Q4

REPORT INFORMATION
  Report Type: Spontaneous
  Country: US (occurrence: US)
  Receive Date: 20131130
  Receipt Date: 20131130
  Transmission Date: 20140711
  Serious: Yes (Other)
  Sender: FDA-Public Use
  Company Number: US-BRISTOL-MYERS SQUIBB COMPANY-19841485

PATIENT
  Age: 44 Year
  Sex: Female

DRUGS (13)
  1. ABILIFY [Suspect]
     Indication: DEPRESSION
     Dates: start: 20130905
  2. ASPIRIN [Concomitant]
  3. OXCARBAZEPINE [Concomitant]
  4. SERTRALINE [Concomitant]
  5. PHENYTOIN [Concomitant]
  6. FOLIC ACID [Concomitant]
  7. SIMVASTATIN [Concomitant]
  8. DICYCLOMINE [Concomitant]
  9. PIROXICAM [Concomitant]
  10. ATENOLOL [Concomitant]
  11. TRAZODONE HCL [Concomitant]
  12. CLONIDINE [Concomitant]
  13. COMBIVENT [Concomitant]

REACTIONS (7)
  - Concussion [Unknown]
  - Fall [Unknown]
  - Joint dislocation [Unknown]
  - Loss of consciousness [Unknown]
  - Mood swings [Unknown]
  - Aggression [Unknown]
  - Drug dose omission [Unknown]
